FAERS Safety Report 6924335-3 (Version None)
Quarter: 2010Q3

REPORT INFORMATION
  Report Type: 
  Country: None (occurrence: None)
  Receive Date: 20100811
  Receipt Date: 20100811
  Transmission Date: 20110219
  Serious: Yes (Other)
  Sender: FDA-Public Use
  Company Number: None

PATIENT
  Age: 64 Year
  Sex: Male
  Weight: 68.0396 kg

DRUGS (2)
  1. CELEBREX [Suspect]
     Indication: ARTHRALGIA
     Dosage: 200 MG ONCE PER DAY BUCCAL
     Route: 002
     Dates: start: 20100414, end: 20100809
  2. CELEBREX [Suspect]
     Indication: JOINT SWELLING
     Dosage: 200 MG ONCE PER DAY BUCCAL
     Route: 002
     Dates: start: 20100414, end: 20100809

REACTIONS (1)
  - ANAPHYLACTIC REACTION [None]
